FAERS Safety Report 8989861 (Version 2)
Quarter: 2013Q1

REPORT INFORMATION
  Report Type: Report from Study
  Country: US (occurrence: US)
  Receive Date: 20121228
  Receipt Date: 20130114
  Transmission Date: 20140127
  Serious: Yes (Hospitalization)
  Sender: FDA-Public Use
  Company Number: US-GLAXOSMITHKLINE-A1006509A

PATIENT
  Age: 61 Year
  Sex: Male

DRUGS (2)
  1. ELTROMBOPAG [Suspect]
     Indication: THROMBOCYTOPENIA
     Dosage: 100MG CYCLIC
     Route: 048
     Dates: start: 20121206
  2. GEMCITABINE [Concomitant]
     Indication: NEOPLASM
     Route: 042
     Dates: start: 20121109

REACTIONS (2)
  - Dyspnoea [Not Recovered/Not Resolved]
  - Pleural effusion [Recovered/Resolved]
